FAERS Safety Report 24223267 (Version 1)
Quarter: 2024Q3

REPORT INFORMATION
  Report Type: Spontaneous
  Country: FR (occurrence: None)
  Receive Date: 20240816
  Receipt Date: 20240816
  Transmission Date: 20241016
  Serious: Yes (Disabling, Other)
  Sender: Public
  Company Number: None

PATIENT
  Age: 55 Year
  Sex: Female
  Weight: 67 kg

DRUGS (1)
  1. BUPRENORPHINE [Suspect]
     Active Substance: BUPRENORPHINE
     Indication: Fibromyalgia

REACTIONS (4)
  - Tooth injury [None]
  - Dental caries [None]
  - Tooth abscess [None]
  - Tooth discolouration [None]

NARRATIVE: CASE EVENT DATE: 20220101
